FAERS Safety Report 16392594 (Version 1)
Quarter: 2019Q2

REPORT INFORMATION
  Report Type: Spontaneous
  Country: UY (occurrence: UY)
  Receive Date: 20190605
  Receipt Date: 20190605
  Transmission Date: 20190711
  Serious: Yes (Other)
  Sender: FDA-Public Use
  Company Number: UY-ROCHE-2326020

PATIENT
  Age: 58 Year
  Sex: Female

DRUGS (4)
  1. MABTHERA [Suspect]
     Active Substance: RITUXIMAB
     Indication: CHRONIC LYMPHOCYTIC LEUKAEMIA
     Route: 042
     Dates: start: 201903
  2. CYCLOPHOSPHAMIDE. [Concomitant]
     Active Substance: CYCLOPHOSPHAMIDE
     Route: 065
  3. MABTHERA [Suspect]
     Active Substance: RITUXIMAB
     Indication: CHRONIC LYMPHOCYTIC LEUKAEMIA
     Route: 058
  4. FLUDARABINE [Concomitant]
     Active Substance: FLUDARABINE PHOSPHATE
     Route: 065

REACTIONS (7)
  - Rash [Recovered/Resolved]
  - Skin reaction [Unknown]
  - Insomnia [Recovered/Resolved]
  - Neutropenia [Not Recovered/Not Resolved]
  - Pruritus [Recovered/Resolved]
  - Leukopenia [Not Recovered/Not Resolved]
  - Tumour pain [Recovered/Resolved]

NARRATIVE: CASE EVENT DATE: 20190524
